FAERS Safety Report 13927625 (Version 11)
Quarter: 2020Q3

REPORT INFORMATION
  Report Type: Spontaneous
  Country: US (occurrence: US)
  Receive Date: 20170831
  Receipt Date: 20200717
  Transmission Date: 20201102
  Serious: Yes (Hospitalization, Other)
  Sender: FDA-Public Use
  Company Number: US-JAZZ-JPI-P-033507

PATIENT
  Age: 55 Year
  Sex: Male
  Weight: 113.29 kg

DRUGS (17)
  1. CARVEDILOL. [Concomitant]
     Active Substance: CARVEDILOL
  2. ASA [Concomitant]
     Active Substance: ASPIRIN
     Indication: PRODUCT USED FOR UNKNOWN INDICATION
  3. XYREM [Suspect]
     Active Substance: SODIUM OXYBATE
     Indication: NARCOLEPSY
     Dosage: 6G, QD
     Route: 048
     Dates: start: 20021031
  4. XYREM [Suspect]
     Active Substance: SODIUM OXYBATE
     Indication: CATAPLEXY
     Dosage: UNKNOWN SINGLE DOSE
     Route: 048
     Dates: end: 2009
  5. METHYLPHENIDATE HYDROCHLORIDE. [Concomitant]
     Active Substance: METHYLPHENIDATE HYDROCHLORIDE
     Indication: CATAPLEXY
  6. PROMETHAZINE [Concomitant]
     Active Substance: PROMETHAZINE HYDROCHLORIDE
     Indication: PRODUCT USED FOR UNKNOWN INDICATION
  7. MORPHINE SULFATE. [Suspect]
     Active Substance: MORPHINE SULFATE
     Indication: SPINAL PAIN
     Dosage: UNK
     Route: 048
     Dates: start: 201304
  8. XYREM [Suspect]
     Active Substance: SODIUM OXYBATE
     Dosage: 3.75G, BID
     Route: 048
     Dates: start: 201306, end: 201611
  9. RITALIN [Concomitant]
     Active Substance: METHYLPHENIDATE HYDROCHLORIDE
     Indication: PRODUCT USED FOR UNKNOWN INDICATION
  10. FUROSEMIDE. [Concomitant]
     Active Substance: FUROSEMIDE
     Indication: PRODUCT USED FOR UNKNOWN INDICATION
  11. METHYLPHENIDATE HYDROCHLORIDE. [Concomitant]
     Active Substance: METHYLPHENIDATE HYDROCHLORIDE
     Indication: NARCOLEPSY
  12. XYREM [Suspect]
     Active Substance: SODIUM OXYBATE
     Dosage: 4.5 GRAM, BID
     Route: 048
  13. MAGNESIUM [Concomitant]
     Active Substance: MAGNESIUM
     Indication: PRODUCT USED FOR UNKNOWN INDICATION
  14. PRAVASTATIN SODIUM. [Concomitant]
     Active Substance: PRAVASTATIN SODIUM
     Indication: BLOOD CHOLESTEROL INCREASED
  15. HYDROCHLOROTHIAZIDE. [Concomitant]
     Active Substance: HYDROCHLOROTHIAZIDE
     Indication: PRODUCT USED FOR UNKNOWN INDICATION
  16. HYDRALAZINE HCL [Concomitant]
     Active Substance: HYDRALAZINE HYDROCHLORIDE
     Indication: PRODUCT USED FOR UNKNOWN INDICATION
  17. COREG [Concomitant]
     Active Substance: CARVEDILOL
     Indication: PRODUCT USED FOR UNKNOWN INDICATION

REACTIONS (15)
  - Spinal fusion surgery [Unknown]
  - Loss of consciousness [Unknown]
  - Device dislocation [Recovered/Resolved]
  - Shoulder arthroplasty [Unknown]
  - Discomfort [Unknown]
  - Hemiplegia [Unknown]
  - Chest pain [Unknown]
  - Diarrhoea [Not Recovered/Not Resolved]
  - Neuromyotonia [Not Recovered/Not Resolved]
  - Gastrointestinal disorder [Not Recovered/Not Resolved]
  - Dyspnoea [Recovered/Resolved]
  - Fluid retention [Not Recovered/Not Resolved]
  - Vision blurred [Recovered/Resolved]
  - Orthostatic hypertension [Recovering/Resolving]
  - Dysarthria [Recovered/Resolved]

NARRATIVE: CASE EVENT DATE: 201306
